FAERS Safety Report 8914354 (Version 1)
Quarter: 2012Q4

REPORT INFORMATION
  Report Type: 
  Country: IT (occurrence: IT)
  Receive Date: 20121118
  Receipt Date: 20121118
  Transmission Date: 20130627
  Serious: Yes (Other)
  Sender: FDA-Public Use
  Company Number: IT-MYLANLABS-2012S1023033

PATIENT
  Age: 71 Year
  Sex: Female

DRUGS (8)
  1. GEMCITABINE [Suspect]
     Indication: RECTAL CANCER METASTATIC
     Dosage: 1 g/m2 d1+15
     Route: 065
     Dates: start: 200702, end: 200708
  2. OXALIPLATIN [Suspect]
     Indication: RECTAL CANCER METASTATIC
     Dosage: 85 mg/m2 d2+16
     Route: 065
     Dates: start: 200702, end: 200808
  3. CALCIUM LEVOFOLINATE [Suspect]
     Indication: RECTAL CANCER METASTATIC
     Dosage: 100 mg/m2 d1-2, 15-16
     Route: 065
     Dates: start: 200702, end: 200708
  4. FLUOROURACIL [Suspect]
     Indication: RECTAL CANCER METASTATIC
     Dosage: 400 mg/m2 d1-2, 15-16
     Route: 040
     Dates: start: 200702, end: 200708
  5. FLUOROURACIL [Suspect]
     Indication: RECTAL CANCER METASTATIC
     Dosage: 800 mg/m2 d1-2, 15-16
     Route: 041
     Dates: start: 200702, end: 200708
  6. GRANULOCYTE COLONY STIMULATING FACTOR [Suspect]
     Indication: RECTAL CANCER METASTATIC
     Dosage: 100 microg d3-7
     Route: 058
     Dates: start: 200702, end: 200708
  7. INTERLEUKIN-2/DIPTHERIA TOXIN FUSION PROTEIN [Suspect]
     Indication: RECTAL CANCER METASTATIC
     Dosage: 0.5 x 10e6 IU twice daily d8-14, 17-29
     Route: 058
     Dates: start: 200702, end: 200708
  8. INTERLEUKIN-2 [Concomitant]
     Indication: RECTAL CANCER METASTATIC
     Dosage: 0.5 MIU twice daily for 5 days/week and 3 weeks out of 4
     Route: 058
     Dates: end: 200808

REACTIONS (1)
  - Sjogren^s syndrome [Recovered/Resolved]
